FAERS Safety Report 9206692 (Version 2)
Quarter: 2013Q4

REPORT INFORMATION
  Report Type: Spontaneous
  Country: US (occurrence: US)
  Receive Date: 20130403
  Receipt Date: 20131206
  Transmission Date: 20140711
  Serious: Yes (Other)
  Sender: FDA-Public Use
  Company Number: US-BAYER-2013-040228

PATIENT
  Age: 30 Year
  Sex: Female

DRUGS (10)
  1. YASMIN [Suspect]
     Dosage: UNK
     Dates: start: 2009, end: 2010
  2. YAZ [Suspect]
     Dosage: UNK
     Dates: start: 2009, end: 2010
  3. OCELLA [Suspect]
     Dosage: UNK
     Dates: start: 2009, end: 2010
  4. SERTRALINE [Concomitant]
     Dosage: 50 MG, UNK
     Route: 048
  5. SEROQUEL [Concomitant]
     Dosage: 50 MG, UNK
     Route: 048
     Dates: start: 20100507
  6. ALDACTONE [SPIRONOLACTONE] [Concomitant]
     Dosage: 50 MG, UNK
     Route: 048
  7. VITAMIN D [Concomitant]
  8. MEPERIDINE [Concomitant]
  9. PANTOPRAZOLE [Concomitant]
  10. PROMETHAZINE [Concomitant]

REACTIONS (7)
  - Cholelithiasis [None]
  - Biliary dyskinesia [None]
  - Emotional distress [None]
  - Abdominal pain [None]
  - Injury [None]
  - Pain [None]
  - Pain [None]
